FAERS Safety Report 22166282 (Version 1)
Quarter: 2023Q2

REPORT INFORMATION
  Report Type: Spontaneous
  Country: AU (occurrence: AU)
  Receive Date: 20230403
  Receipt Date: 20230403
  Transmission Date: 20230722
  Serious: Yes (Other)
  Sender: FDA-Public Use
  Company Number: AU-MYLANLABS-2022M1125202

PATIENT
  Age: 24 Year

DRUGS (2)
  1. CLOZARIL [Suspect]
     Active Substance: CLOZAPINE
     Indication: Schizophrenia
     Dosage: 225 MILLIGRAM (START DATE: 21-OCT-2022)
     Route: 048
  2. ZUCLOPENTHIXOL [Concomitant]
     Active Substance: ZUCLOPENTHIXOL
     Dosage: 300 MILLIGRAM, Q2W
     Route: 065

REACTIONS (10)
  - Myocarditis [Unknown]
  - Red cell distribution width increased [Recovering/Resolving]
  - C-reactive protein increased [Recovering/Resolving]
  - Troponin increased [Recovered/Resolved]
  - Haemoglobin decreased [Recovering/Resolving]
  - White blood cell count increased [Recovering/Resolving]
  - Mean cell volume decreased [Recovering/Resolving]
  - Mean cell haemoglobin decreased [Recovering/Resolving]
  - Neutrophil count increased [Recovering/Resolving]
  - Monocyte count increased [Recovering/Resolving]

NARRATIVE: CASE EVENT DATE: 20220713
